FAERS Safety Report 16636418 (Version 4)
Quarter: 2019Q3

REPORT INFORMATION
  Report Type: Spontaneous
  Country: US (occurrence: US)
  Receive Date: 20190726
  Receipt Date: 20190920
  Transmission Date: 20191004
  Serious: No
  Sender: FDA-Public Use
  Company Number: US-PFIZER INC-2019244117

PATIENT
  Age: 58 Year
  Sex: Female
  Weight: 70.31 kg

DRUGS (3)
  1. BOSULIF [Suspect]
     Active Substance: BOSUTINIB MONOHYDRATE
     Indication: CHRONIC MYELOID LEUKAEMIA
     Dosage: 100 MG, DAILY
     Dates: start: 201811
  2. BOSULIF [Suspect]
     Active Substance: BOSUTINIB MONOHYDRATE
     Dosage: 300 MG, DAILY
  3. BOSULIF [Suspect]
     Active Substance: BOSUTINIB MONOHYDRATE
     Dosage: 200 MG, DAILY

REACTIONS (5)
  - Functional gastrointestinal disorder [Unknown]
  - Insomnia [Unknown]
  - Thinking abnormal [Unknown]
  - Arthropathy [Not Recovered/Not Resolved]
  - Depression [Unknown]
